FAERS Safety Report 9014946 (Version 1)
Quarter: 2013Q1

REPORT INFORMATION
  Report Type: Spontaneous
  Country: US (occurrence: None)
  Receive Date: 20130109
  Receipt Date: 20130109
  Transmission Date: 20140127
  Serious: Yes (Other)
  Sender: FDA-Public Use
  Company Number: None

PATIENT
  Sex: Female
  Weight: 73.48 kg

DRUGS (17)
  1. LORYNA [Suspect]
     Indication: CONTRACEPTION
     Dosage: 1 TABLET
     Route: 048
     Dates: start: 20120901
  2. LORYNA [Suspect]
     Indication: MENSTRUATION IRREGULAR
     Dosage: 1 TABLET
     Route: 048
     Dates: start: 20120901
  3. LORYNA [Suspect]
     Indication: MENSTRUAL CYCLE MANAGEMENT
     Dosage: 1 TABLET
     Route: 048
     Dates: start: 20120901
  4. CLONAZEPAM [Concomitant]
  5. BABY ASPIRIN [Concomitant]
  6. DIAZEPAM [Concomitant]
  7. CELEBREX [Concomitant]
  8. MULTIVITAMIN [Concomitant]
  9. LYSINE [Concomitant]
  10. NAPROXEN [Concomitant]
  11. TEMAZEPAM [Concomitant]
  12. FLEXERIL [Concomitant]
  13. IMITREX [Concomitant]
  14. TOPAMAX [Concomitant]
  15. CYMBALTA [Concomitant]
  16. BUSPAR [Concomitant]
  17. ULTRAM [Concomitant]

REACTIONS (4)
  - Hot flush [None]
  - Night sweats [None]
  - Abdominal pain lower [None]
  - Breast tenderness [None]
